FAERS Safety Report 5282072-8 (Version None)
Quarter: 2007Q1

REPORT INFORMATION
  Report Type: 
  Country: None (occurrence: None)
  Receive Date: 20070330
  Receipt Date: 20070319
  Transmission Date: 20070707
  Serious: Yes (Hospitalization)
  Sender: FDA-Public Use
  Company Number: JP-PFIZER INC-2007024539

PATIENT
  Age: 24 Year
  Sex: Female

DRUGS (3)
  1. MIGLITOL TABLET [Suspect]
     Indication: DIABETES MELLITUS
     Route: 048
     Dates: start: 20070216, end: 20070220
  2. LOXONIN [Concomitant]
     Route: 048
  3. GLYCLOPYRAMIDE [Concomitant]
     Indication: DIABETES MELLITUS
     Route: 048

REACTIONS (1)
  - GASTRIC ULCER [None]
